FAERS Safety Report 13358802 (Version 3)
Quarter: 2017Q2

REPORT INFORMATION
  Report Type: Spontaneous
  Country: US (occurrence: US)
  Receive Date: 20170322
  Receipt Date: 20170623
  Transmission Date: 20170830
  Serious: No
  Sender: FDA-Public Use
  Company Number: US-BAYER-2017-054722

PATIENT
  Age: 50 Year
  Sex: Female

DRUGS (3)
  1. GADAVIST [Suspect]
     Active Substance: GADOBUTROL
     Indication: PAIN IN EXTREMITY
     Dosage: 8.5 ML, ONCE
     Route: 042
     Dates: start: 20170615
  2. GADAVIST [Suspect]
     Active Substance: GADOBUTROL
     Indication: NUCLEAR MAGNETIC RESONANCE IMAGING
     Dosage: 8.5 ML, ONCE
     Route: 042
     Dates: start: 20170320, end: 20170320
  3. GADAVIST [Suspect]
     Active Substance: GADOBUTROL
     Indication: NUCLEAR MAGNETIC RESONANCE IMAGING
     Dosage: 8.5 ML, ONCE
     Route: 042
     Dates: start: 201706

REACTIONS (8)
  - Urticaria [Recovered/Resolved]
  - Hypertension [Recovered/Resolved]
  - Anxiety [None]
  - Chills [None]
  - Headache [None]
  - Swollen tongue [None]
  - Discomfort [None]
  - Lip pruritus [Recovered/Resolved]

NARRATIVE: CASE EVENT DATE: 20170320
